FAERS Safety Report 15136126 (Version 1)
Quarter: 2018Q3

REPORT INFORMATION
  Report Type: Report from Study
  Country: FR (occurrence: FR)
  Receive Date: 20180712
  Receipt Date: 20180712
  Transmission Date: 20181010
  Serious: Yes (Other)
  Sender: FDA-Public Use
  Company Number: FR-PFIZER INC-2018273681

PATIENT
  Age: 8 Month
  Sex: Male
  Weight: 2.8 kg

DRUGS (4)
  1. TRILEPTAL [Suspect]
     Active Substance: OXCARBAZEPINE
     Dosage: 900 MG, 1X/DAY
     Route: 064
  2. NEURONTIN [Suspect]
     Active Substance: GABAPENTIN
     Dosage: 1.8 G, 1X/DAY
     Route: 064
  3. GILENYA [Suspect]
     Active Substance: FINGOLIMOD HYDROCHLORIDE
     Dosage: 0.5 MG, 1X/DAY
     Route: 064
  4. VESICARE [Suspect]
     Active Substance: SOLIFENACIN SUCCINATE
     Dosage: 5 MG, 1X/DAY
     Route: 064

REACTIONS (2)
  - Foetal heart rate disorder [Unknown]
  - Maternal exposure during pregnancy [Unknown]
